FAERS Safety Report 7303073 (Version 5)
Quarter: 2013Q1

REPORT INFORMATION
  Report Type: Spontaneous
  Country: US (occurrence: US)
  Receive Date: 20100303
  Receipt Date: 20130125
  Transmission Date: 20140127
  Serious: Yes (Hospitalization)
  Sender: FDA-Public Use
  Company Number: US-BAYER-201015115NA

PATIENT
  Age: 34 Year
  Sex: Female
  Weight: 90.7 kg

DRUGS (4)
  1. YASMIN [Suspect]
     Indication: CONTRACEPTION
     Route: 048
  2. TYLENOL [Concomitant]
  3. TYLENOL [Concomitant]
     Dosage: UNK UNK, PRN
  4. CEFTIN [Concomitant]

REACTIONS (5)
  - Vena cava thrombosis [Recovering/Resolving]
  - Appendicitis [None]
  - Injury [None]
  - Anxiety [None]
  - Depression [None]
